FAERS Safety Report 11451502 (Version 1)
Quarter: 2015Q3

REPORT INFORMATION
  Report Type: Spontaneous
  Country: US (occurrence: US)
  Receive Date: 20150903
  Receipt Date: 20150903
  Transmission Date: 20151125
  Serious: No
  Sender: FDA-Public Use
  Company Number: US-ROCHE-1047005

PATIENT
  Age: 34 Year
  Sex: Female

DRUGS (3)
  1. RIBAVIRIN. [Concomitant]
     Active Substance: RIBAVIRIN
     Indication: HEPATITIS C
  2. TELAPREVIR [Concomitant]
     Active Substance: TELAPREVIR
     Indication: HEPATITIS C
  3. PEGASYS [Suspect]
     Active Substance: PEGINTERFERON ALFA-2A
     Indication: CHRONIC HEPATITIS C

REACTIONS (2)
  - Platelet count decreased [Unknown]
  - Neutropenia [Unknown]
